FAERS Safety Report 20370140 (Version 1)
Quarter: 2022Q1

REPORT INFORMATION
  Report Type: Spontaneous
  Country: US (occurrence: US)
  Receive Date: 20220124
  Receipt Date: 20220124
  Transmission Date: 20220423
  Serious: No
  Sender: FDA-Public Use
  Company Number: US-PERRIGO-21US002045

PATIENT

DRUGS (1)
  1. IBUPROFEN [Suspect]
     Active Substance: IBUPROFEN
     Indication: Headache
     Dosage: UNKNOWN, QD
     Route: 048
     Dates: start: 202102

REACTIONS (2)
  - Condition aggravated [Unknown]
  - Migraine [Unknown]

NARRATIVE: CASE EVENT DATE: 20210201
